FAERS Safety Report 16577185 (Version 1)
Quarter: 2019Q3

REPORT INFORMATION
  Report Type: Spontaneous
  Country: CA (occurrence: CA)
  Receive Date: 20190716
  Receipt Date: 20190716
  Transmission Date: 20191004
  Serious: Yes (Hospitalization, Other)
  Sender: FDA-Public Use
  Company Number: CA-AUROBINDO-AUR-APL-2019-039554

PATIENT

DRUGS (6)
  1. MOXIFLOXACIN. [Suspect]
     Active Substance: MOXIFLOXACIN
     Indication: DYSPNOEA
     Dosage: UNK
     Route: 065
  2. PREDNISONE. [Suspect]
     Active Substance: PREDNISONE
     Dosage: 20 MILLIGRAM, ONCE A DAY
     Route: 065
  3. PREDNISONE. [Suspect]
     Active Substance: PREDNISONE
     Indication: PRODUCT USED FOR UNKNOWN INDICATION
     Dosage: 10 MILLIGRAM, ONCE A DAY
     Route: 065
  4. OMALIZUMAB. [Suspect]
     Active Substance: OMALIZUMAB
     Dosage: UNK
     Route: 058
  5. OMALIZUMAB. [Suspect]
     Active Substance: OMALIZUMAB
     Indication: ASTHMA
     Dosage: 300 MILLIGRAM
     Route: 058
  6. OMALIZUMAB. [Suspect]
     Active Substance: OMALIZUMAB
     Dosage: 225 MILLIGRAM,1 EVERY 2 WEEK
     Route: 058

REACTIONS (34)
  - CSF pressure increased [Not Recovered/Not Resolved]
  - Fall [Not Recovered/Not Resolved]
  - Myalgia [Not Recovered/Not Resolved]
  - Respiratory disorder [Not Recovered/Not Resolved]
  - Wheezing [Not Recovered/Not Resolved]
  - Pyrexia [Not Recovered/Not Resolved]
  - Cataract [Not Recovered/Not Resolved]
  - Chest discomfort [Not Recovered/Not Resolved]
  - Forced expiratory volume decreased [Not Recovered/Not Resolved]
  - Headache [Not Recovered/Not Resolved]
  - Joint injury [Not Recovered/Not Resolved]
  - Oropharyngeal pain [Not Recovered/Not Resolved]
  - Papilloedema [Not Recovered/Not Resolved]
  - Vision blurred [Not Recovered/Not Resolved]
  - Dyspnoea [Not Recovered/Not Resolved]
  - Asthma [Not Recovered/Not Resolved]
  - Insomnia [Not Recovered/Not Resolved]
  - Lung infection [Not Recovered/Not Resolved]
  - Brain oedema [Not Recovered/Not Resolved]
  - Drug ineffective [Not Recovered/Not Resolved]
  - Dysphonia [Not Recovered/Not Resolved]
  - Haemoptysis [Not Recovered/Not Resolved]
  - Head injury [Not Recovered/Not Resolved]
  - Obstructive airways disorder [Not Recovered/Not Resolved]
  - Road traffic accident [Not Recovered/Not Resolved]
  - Pneumonia [Not Recovered/Not Resolved]
  - Rhinorrhoea [Not Recovered/Not Resolved]
  - Weight increased [Not Recovered/Not Resolved]
  - Laryngitis [Not Recovered/Not Resolved]
  - Chest pain [Not Recovered/Not Resolved]
  - Cough [Not Recovered/Not Resolved]
  - Drug hypersensitivity [Not Recovered/Not Resolved]
  - Idiopathic intracranial hypertension [Not Recovered/Not Resolved]
  - Lower respiratory tract infection [Not Recovered/Not Resolved]
